FAERS Safety Report 16351068 (Version 1)
Quarter: 2019Q2

REPORT INFORMATION
  Report Type: Spontaneous
  Country: US (occurrence: US)
  Receive Date: 20190524
  Receipt Date: 20190524
  Transmission Date: 20190711
  Serious: No
  Sender: FDA-Public Use
  Company Number: US-ALVOGEN-2019-ALVOGEN-098871

PATIENT
  Sex: Female

DRUGS (1)
  1. OSELTAMIVIR [Suspect]
     Active Substance: OSELTAMIVIR
     Indication: PROPHYLAXIS
     Dosage: 6 MILLIGRAM PER MILLILITRE
     Dates: start: 20190207

REACTIONS (2)
  - Withdrawal syndrome [Not Recovered/Not Resolved]
  - Hallucination, auditory [Not Recovered/Not Resolved]
